FAERS Safety Report 18459520 (Version 2)
Quarter: 2021Q1

REPORT INFORMATION
  Report Type: Spontaneous
  Country: US (occurrence: US)
  Receive Date: 20201103
  Receipt Date: 20210216
  Transmission Date: 20210419
  Serious: No
  Sender: FDA-Public Use
  Company Number: US-PFIZER INC-2020423371

PATIENT
  Age: 58 Year
  Sex: Female

DRUGS (3)
  1. XELJANZ XR [Suspect]
     Active Substance: TOFACITINIB CITRATE
     Indication: RHEUMATOID ARTHRITIS
     Dosage: 11 MG, 1X/DAY
     Route: 048
     Dates: start: 20200908
  2. TREXALL [Concomitant]
     Active Substance: METHOTREXATE SODIUM
     Dosage: UNK
  3. METHOTREXATE. [Concomitant]
     Active Substance: METHOTREXATE
     Dosage: UNK

REACTIONS (7)
  - Sensitivity to weather change [Unknown]
  - Product dose omission issue [Unknown]
  - Memory impairment [Unknown]
  - Pain in extremity [Unknown]
  - Finger deformity [Unknown]
  - Drug ineffective [Unknown]
  - Joint swelling [Unknown]

NARRATIVE: CASE EVENT DATE: 202010
